FAERS Safety Report 6259331-5 (Version None)
Quarter: 2009Q3

REPORT INFORMATION
  Report Type: 
  Country: None (occurrence: None)
  Receive Date: 20090706
  Receipt Date: 20090622
  Transmission Date: 20100115
  Serious: Yes (Other)
  Sender: FDA-Public Use
  Company Number: A-US2006-12231

PATIENT
  Age: 11 Year
  Sex: Female
  Weight: 28.1 kg

DRUGS (6)
  1. TRACLEER [Suspect]
     Indication: PULMONARY ARTERIAL HYPERTENSION
     Dosage: (62.5 MG, BID ORAL)(62.5 MG QAM; 125 MG QHS, ORAL)(125 MG BID, ORAL)(62.5, BID ORAL)(62.5 MG, QD, OR
     Route: 048
     Dates: start: 20051017, end: 20060124
  2. TRACLEER [Suspect]
     Indication: PULMONARY ARTERIAL HYPERTENSION
     Dosage: (62.5 MG, BID ORAL)(62.5 MG QAM; 125 MG QHS, ORAL)(125 MG BID, ORAL)(62.5, BID ORAL)(62.5 MG, QD, OR
     Route: 048
     Dates: start: 20060621, end: 20060701
  3. TRACLEER [Suspect]
     Indication: PULMONARY ARTERIAL HYPERTENSION
     Dosage: (62.5 MG, BID ORAL)(62.5 MG QAM; 125 MG QHS, ORAL)(125 MG BID, ORAL)(62.5, BID ORAL)(62.5 MG, QD, OR
     Route: 048
     Dates: start: 20060701, end: 20061005
  4. TRACLEER [Suspect]
     Indication: PULMONARY ARTERIAL HYPERTENSION
     Dosage: (62.5 MG, BID ORAL)(62.5 MG QAM; 125 MG QHS, ORAL)(125 MG BID, ORAL)(62.5, BID ORAL)(62.5 MG, QD, OR
     Route: 048
     Dates: start: 20061010, end: 20081014
  5. TRACLEER [Suspect]
     Indication: PULMONARY ARTERIAL HYPERTENSION
     Dosage: (62.5 MG, BID ORAL)(62.5 MG QAM; 125 MG QHS, ORAL)(125 MG BID, ORAL)(62.5, BID ORAL)(62.5 MG, QD, OR
     Route: 048
     Dates: start: 20081118, end: 20090305
  6. TRACLEER [Suspect]
     Indication: PULMONARY ARTERIAL HYPERTENSION
     Dosage: (62.5 MG, BID ORAL)(62.5 MG QAM; 125 MG QHS, ORAL)(125 MG BID, ORAL)(62.5, BID ORAL)(62.5 MG, QD, OR
     Route: 048
     Dates: start: 20090305, end: 20090414

REACTIONS (7)
  - ANISOCYTOSIS [None]
  - HAEMATOCRIT DECREASED [None]
  - HAEMOGLOBIN DECREASED [None]
  - LEUKOPENIA [None]
  - NEUTROPENIA [None]
  - OFF LABEL USE [None]
  - POIKILOCYTOSIS [None]
